FAERS Safety Report 24849168 (Version 1)
Quarter: 2025Q1

REPORT INFORMATION
  Report Type: Report from Study
  Country: HK (occurrence: HK)
  Receive Date: 20250116
  Receipt Date: 20250116
  Transmission Date: 20250409
  Serious: Yes (Other)
  Sender: MYLAN
  Company Number: HK-MYLANLABS-2025M1003245

PATIENT
  Age: 69 Year
  Sex: Female

DRUGS (3)
  1. VERAPAMIL [Suspect]
     Active Substance: VERAPAMIL HYDROCHLORIDE
     Indication: Ventricular tachycardia
     Route: 065
  2. OSIMERTINIB [Concomitant]
     Active Substance: OSIMERTINIB
     Indication: Non-small cell lung cancer
     Dosage: 80 MILLIGRAM, QD
     Route: 065
  3. OSIMERTINIB [Concomitant]
     Active Substance: OSIMERTINIB
     Indication: EGFR gene mutation
     Dosage: 40 MILLIGRAM, QD
     Route: 065

REACTIONS (1)
  - Drug ineffective [Unknown]
